FAERS Safety Report 12258935 (Version 1)
Quarter: 2016Q2

REPORT INFORMATION
  Report Type: Spontaneous
  Country: US (occurrence: US)
  Receive Date: 20160412
  Receipt Date: 20160412
  Transmission Date: 20160815
  Serious: No
  Sender: FDA-Public Use
  Company Number: US-SA-2015SA062763

PATIENT
  Age: 14 Year
  Sex: Female

DRUGS (1)
  1. ALLEGRA [Suspect]
     Active Substance: FEXOFENADINE HYDROCHLORIDE
     Indication: MULTIPLE ALLERGIES
     Dosage: START DATE WAS MENTIONED AS WEDNESDAY
     Route: 048

REACTIONS (4)
  - Eye pruritus [Unknown]
  - Eye discharge [Unknown]
  - Ocular hyperaemia [Unknown]
  - Eye pain [Unknown]
